FAERS Safety Report 10110147 (Version 2)
Quarter: 2014Q3

REPORT INFORMATION
  Report Type: Other
  Country: US (occurrence: US)
  Receive Date: 20140425
  Receipt Date: 20140929
  Transmission Date: 20150326
  Serious: Yes (Hospitalization, Other)
  Sender: FDA-Public Use
  Company Number: US-GSKPPD-2014GSK008781

PATIENT
  Age: 77 Year
  Sex: Male

DRUGS (15)
  1. NORVASC [Concomitant]
     Active Substance: AMLODIPINE BESYLATE
     Dates: start: 200909
  2. AMIODARONE [Concomitant]
     Active Substance: AMIODARONE
     Dates: start: 200906
  3. ESMOLOL [Concomitant]
     Active Substance: ESMOLOL HYDROCHLORIDE
     Dates: start: 200906
  4. METOPROLOL [Concomitant]
     Active Substance: METOPROLOL
     Dates: start: 200909
  5. ASPIRIN. [Concomitant]
     Active Substance: ASPIRIN
     Dates: start: 200906
  6. LISINOPRIL. [Concomitant]
     Active Substance: LISINOPRIL
  7. PLAVIX [Concomitant]
     Active Substance: CLOPIDOGREL BISULFATE
     Dates: start: 200909
  8. LISINOPRIL. [Concomitant]
     Active Substance: LISINOPRIL
     Dates: start: 200906
  9. LASIX [Concomitant]
     Active Substance: FUROSEMIDE
     Dates: start: 200909
  10. AVANDIA [Suspect]
     Active Substance: ROSIGLITAZONE MALEATE
     Indication: DIABETES MELLITUS
     Dosage: DATE OF AVANDIA USE COULD NOT BE CONFIRMED IN RECORDS REVIEWED.
     Route: 048
  11. PLAVIX [Concomitant]
     Active Substance: CLOPIDOGREL BISULFATE
     Dates: start: 200906
  12. LOPRESSOR [Concomitant]
     Active Substance: METOPROLOL TARTRATE
     Route: 042
     Dates: start: 200906
  13. METOPROLOL [Concomitant]
     Active Substance: METOPROLOL
     Dates: start: 200906
  14. AMIODARONE [Concomitant]
     Active Substance: AMIODARONE
     Dates: start: 200909
  15. ASPIRIN. [Concomitant]
     Active Substance: ASPIRIN
     Dates: start: 200909

REACTIONS (2)
  - Acute myocardial infarction [Recovered/Resolved]
  - Cardiac failure congestive [Recovered/Resolved]

NARRATIVE: CASE EVENT DATE: 20090630
